FAERS Safety Report 5681475-7 (Version None)
Quarter: 2008Q1

REPORT INFORMATION
  Report Type: 
  Country: None (occurrence: None)
  Receive Date: 20080326
  Receipt Date: 20070205
  Transmission Date: 20080703
  Serious: No
  Sender: FDA-Public Use
  Company Number: US-BAYER-US-2007-004259

PATIENT
  Age: 45 Year
  Sex: Female
  Weight: 58 kg

DRUGS (2)
  1. MIRENA [Suspect]
     Indication: MENSTRUATION IRREGULAR
     Route: 015
     Dates: start: 20070123
  2. VITAMIN CAP [Concomitant]

REACTIONS (3)
  - ABDOMINAL PAIN LOWER [None]
  - MENSTRUATION IRREGULAR [None]
  - METRORRHAGIA [None]
